FAERS Safety Report 8965776 (Version 1)
Quarter: 2012Q4

REPORT INFORMATION
  Report Type: 
  Country: DK (occurrence: IT)
  Receive Date: 20121214
  Receipt Date: 20121214
  Transmission Date: 20130627
  Serious: Yes (Other)
  Sender: FDA-Public Use
  Company Number: IT-FRI-1000041047

PATIENT
  Age: 34 Year
  Sex: Female

DRUGS (6)
  1. ESCITALOPRAM [Suspect]
     Route: 048
  2. ESCITALOPRAM [Suspect]
     Route: 048
     Dates: start: 20121116, end: 20121116
  3. HALDOL [Suspect]
     Route: 048
  4. HALDOL [Suspect]
     Route: 048
     Dates: start: 20121116, end: 20121116
  5. EN [Suspect]
     Route: 048
  6. EN [Suspect]
     Route: 048
     Dates: start: 20121116, end: 20121116

REACTIONS (3)
  - Intentional self-injury [Unknown]
  - Blood pressure decreased [Unknown]
  - Overdose [Unknown]
